FAERS Safety Report 12951375 (Version 1)
Quarter: 2016Q4

REPORT INFORMATION
  Report Type: Report from Study
  Country: BR (occurrence: BR)
  Receive Date: 20161117
  Receipt Date: 20161117
  Transmission Date: 20170207
  Serious: Yes (Hospitalization)
  Sender: FDA-Public Use
  Company Number: PHHY2016BR157043

PATIENT
  Sex: Male

DRUGS (3)
  1. RITALIN LA [Suspect]
     Active Substance: METHYLPHENIDATE HYDROCHLORIDE
     Indication: EDUCATIONAL PROBLEM
     Dosage: 10 MG, QD
     Route: 048
  2. RITALIN LA [Suspect]
     Active Substance: METHYLPHENIDATE HYDROCHLORIDE
     Dosage: 20 MG, QD
     Route: 048
  3. RITALIN LA [Suspect]
     Active Substance: METHYLPHENIDATE HYDROCHLORIDE
     Dosage: 30 MG, QD
     Route: 048
     Dates: start: 2016

REACTIONS (19)
  - Obesity [Unknown]
  - Crying [Unknown]
  - Onychophagia [Unknown]
  - Insomnia [Recovering/Resolving]
  - Psychomotor hyperactivity [Unknown]
  - Agitation [Unknown]
  - Product use issue [Not Recovered/Not Resolved]
  - Mania [Unknown]
  - Increased appetite [Recovering/Resolving]
  - Anxiety [Unknown]
  - Abnormal behaviour [Unknown]
  - Depression [Unknown]
  - Herpes virus infection [Unknown]
  - Eating disorder [Unknown]
  - Weight increased [Unknown]
  - Eye colour change [Unknown]
  - Delirium [Unknown]
  - Social avoidant behaviour [Unknown]
  - Cognitive disorder [Unknown]
